FAERS Safety Report 13916055 (Version 1)
Quarter: 2017Q3

REPORT INFORMATION
  Report Type: Report from Study
  Country: NL (occurrence: NL)
  Receive Date: 20170829
  Receipt Date: 20170829
  Transmission Date: 20171127
  Serious: Yes (Other)
  Sender: FDA-Public Use
  Company Number: NL-MYLANLABS-2017M1052770

PATIENT
  Age: 63 Year
  Sex: Male

DRUGS (2)
  1. EVEROLIMUS [Interacting]
     Active Substance: EVEROLIMUS
     Indication: BILE DUCT CANCER
     Dosage: 3+3 DOSE ESCALATIONS PERFORMED
     Route: 065
  2. METFORMIN [Suspect]
     Active Substance: METFORMIN HYDROCHLORIDE
     Indication: DIABETES MELLITUS
     Dosage: 3+3 DOSE ESCALATIONS PERFORMED
     Route: 065

REACTIONS (2)
  - Abdominal pain [Unknown]
  - Drug interaction [Unknown]
